FAERS Safety Report 21701766 (Version 2)
Quarter: 2023Q1

REPORT INFORMATION
  Report Type: Spontaneous
  Country: TR (occurrence: TR)
  Receive Date: 20221208
  Receipt Date: 20230105
  Transmission Date: 20230417
  Serious: Yes (Death, Life-Threatening, Hospitalization)
  Sender: FDA-Public Use
  Company Number: TR-TEVA-2022-TR-2833132

PATIENT
  Age: 69 Year
  Sex: Male

DRUGS (21)
  1. LEVOFLOXACIN [Suspect]
     Active Substance: LEVOFLOXACIN
     Indication: Rhodococcus infection
     Dosage: 2 X 1
     Route: 042
     Dates: start: 2021
  2. LEVOFLOXACIN [Suspect]
     Active Substance: LEVOFLOXACIN
     Indication: Bacteraemia
  3. LEVOFLOXACIN [Suspect]
     Active Substance: LEVOFLOXACIN
     Indication: Pneumonia bacterial
  4. MYCOPHENOLATE MOFETIL [Suspect]
     Active Substance: MYCOPHENOLATE MOFETIL
     Indication: Immunosuppressant drug therapy
     Dosage: 500 MILLIGRAM DAILY;
     Route: 065
  5. TACROLIMUS [Suspect]
     Active Substance: TACROLIMUS
     Indication: Immunosuppressant drug therapy
     Dosage: .5 MILLIGRAM DAILY;
     Route: 065
     Dates: end: 2021
  6. MEROPENEM [Suspect]
     Active Substance: MEROPENEM
     Indication: Rhodococcus infection
     Dosage: 3 X 1
     Route: 042
     Dates: start: 2021, end: 2021
  7. MEROPENEM [Suspect]
     Active Substance: MEROPENEM
     Indication: Bacteraemia
  8. MEROPENEM [Suspect]
     Active Substance: MEROPENEM
     Indication: Pneumonia bacterial
  9. VANCOMYCIN [Suspect]
     Active Substance: VANCOMYCIN
     Indication: Rhodococcus infection
     Dosage: 2 X 1
     Route: 042
     Dates: start: 2021
  10. VANCOMYCIN [Suspect]
     Active Substance: VANCOMYCIN
     Indication: Bacteraemia
  11. VANCOMYCIN [Suspect]
     Active Substance: VANCOMYCIN
     Indication: Pneumonia bacterial
  12. AMPICILLIN SODIUM\SULBACTAM SODIUM [Suspect]
     Active Substance: AMPICILLIN SODIUM\SULBACTAM SODIUM
     Indication: Rhodococcus infection
     Route: 065
     Dates: start: 2021, end: 2021
  13. AMPICILLIN SODIUM\SULBACTAM SODIUM [Suspect]
     Active Substance: AMPICILLIN SODIUM\SULBACTAM SODIUM
     Indication: Bacteraemia
  14. AMPICILLIN SODIUM\SULBACTAM SODIUM [Suspect]
     Active Substance: AMPICILLIN SODIUM\SULBACTAM SODIUM
     Indication: Pneumonia bacterial
  15. IMIPENEM [Suspect]
     Active Substance: IMIPENEM
     Indication: Rhodococcus infection
     Dosage: 4 X 500 MG
     Route: 042
     Dates: start: 2021
  16. IMIPENEM [Suspect]
     Active Substance: IMIPENEM
     Indication: Bacteraemia
  17. IMIPENEM [Suspect]
     Active Substance: IMIPENEM
     Indication: Pneumonia bacterial
  18. COLISTIN [Suspect]
     Active Substance: COLISTIN
     Indication: Rhodococcus infection
     Dosage: MAXIMAL TOLERABLE DOSE
     Route: 042
     Dates: start: 2021
  19. COLISTIN [Suspect]
     Active Substance: COLISTIN
     Indication: Bacteraemia
     Dosage: 2 X 150 MG MAINTENANCE DOSE
     Route: 042
     Dates: start: 2021
  20. COLISTIN [Suspect]
     Active Substance: COLISTIN
     Indication: Pneumonia bacterial
  21. ENOXAPARIN [Concomitant]
     Active Substance: ENOXAPARIN
     Indication: Prophylaxis
     Route: 065
     Dates: start: 2021, end: 2021

REACTIONS (10)
  - Rhodococcus infection [Fatal]
  - Bacteraemia [Fatal]
  - Pneumonia bacterial [Fatal]
  - Nephropathy toxic [Fatal]
  - Acute kidney injury [Fatal]
  - Septic shock [Fatal]
  - Thrombocytopenia [Unknown]
  - Confusional state [Unknown]
  - Respiratory failure [Unknown]
  - Drug ineffective [Unknown]

NARRATIVE: CASE EVENT DATE: 20210101
